FAERS Safety Report 7090342-6 (Version None)
Quarter: 2010Q4

REPORT INFORMATION
  Report Type: 
  Country: None (occurrence: None)
  Receive Date: 20101109
  Receipt Date: 20101028
  Transmission Date: 20110411
  Serious: Yes (Other)
  Sender: FDA-Public Use
  Company Number: PT-JNJFOC-20101101830

PATIENT
  Age: 6 Year
  Sex: Female

DRUGS (1)
  1. METHYLPHENIDATE HCL [Suspect]
     Indication: ILL-DEFINED DISORDER
     Route: 048

REACTIONS (3)
  - AGITATION [None]
  - CHOREOATHETOSIS [None]
  - DYSTONIA [None]
